FAERS Safety Report 8539782-6 (Version None)
Quarter: 2012Q3

REPORT INFORMATION
  Report Type: 
  Country: None (occurrence: None)
  Receive Date: 20120726
  Receipt Date: 20120312
  Transmission Date: 20120928
  Serious: No
  Sender: FDA-Public Use
  Company Number: US-MYLANLABS-2012S1000820

PATIENT
  Age: 64 Year
  Sex: Female
  Weight: 66.23 kg

DRUGS (15)
  1. METFORMIN HYDROCHLORIDE [Concomitant]
  2. B COMPLEX (B50) [Concomitant]
  3. MULTI-VITAMIN [Concomitant]
  4. CLONIDINE HYDROCHLORIDE [Suspect]
     Route: 048
  5. CALCIUM [Concomitant]
  6. ASPIRIN [Concomitant]
  7. CLONIDINE HYDROCHLORIDE [Suspect]
     Indication: HYPERTENSION
     Route: 048
     Dates: start: 20100101
  8. SIMVASTATIN [Concomitant]
  9. FISH OIL [Concomitant]
  10. CLONIDINE HYDROCHLORIDE [Suspect]
     Route: 048
     Dates: end: 20100101
  11. ALENDRONATE SODIUM [Concomitant]
  12. PERCOGESIC [Concomitant]
  13. METAMUCIL-2 [Concomitant]
  14. CLONIDINE HYDROCHLORIDE [Suspect]
     Route: 048
     Dates: end: 19980101
  15. PENICILLIN VK [Concomitant]

REACTIONS (5)
  - DRUG WITHDRAWAL SYNDROME [None]
  - BODY TEMPERATURE FLUCTUATION [None]
  - NAUSEA [None]
  - HEADACHE [None]
  - DIZZINESS [None]
